FAERS Safety Report 5353570-3 (Version None)
Quarter: 2007Q2

REPORT INFORMATION
  Report Type: 
  Country: None (occurrence: None)
  Receive Date: 20070608
  Receipt Date: 20070531
  Transmission Date: 20071010
  Serious: Yes (Hospitalization, Other)
  Sender: FDA-Public Use
  Company Number: GXKR2007DK04768

PATIENT
  Age: 49 Year
  Sex: Female
  Weight: 52 kg

DRUGS (4)
  1. BIOCLAVID (NGX)(AMOXICILLIN, CLAVULANATE) UNKNOWN, 1500MG [Suspect]
     Indication: DISBACTERIOSIS
     Dosage: 3000 MG DAILY, ORAL
     Route: 048
     Dates: start: 20070313, end: 20070315
  2. CALCIUM CARBONATE (CALCIUM CARBONATE) [Concomitant]
  3. FERRO DURETTER (FERROUS SULFATE) [Concomitant]
  4. PAMOL (PARACETAMOL) [Concomitant]

REACTIONS (7)
  - ALANINE AMINOTRANSFERASE INCREASED [None]
  - BLOOD ALKALINE PHOSPHATASE INCREASED [None]
  - DYSPHAGIA [None]
  - FATIGUE [None]
  - HEADACHE [None]
  - MALAISE [None]
  - PAIN [None]
